FAERS Safety Report 13075624 (Version 2)
Quarter: 2017Q1

REPORT INFORMATION
  Report Type: Spontaneous
  Country: US (occurrence: US)
  Receive Date: 20161230
  Receipt Date: 20170126
  Transmission Date: 20170428
  Serious: Yes (Other)
  Sender: FDA-Public Use
  Company Number: US-BEH-2009020065

PATIENT
  Age: 21 Year
  Sex: Female
  Weight: 68.49 kg

DRUGS (1)
  1. RHOPHYLAC [Suspect]
     Active Substance: HUMAN RHO(D) IMMUNE GLOBULIN
     Indication: PREGNANCY
     Route: 030
     Dates: start: 20090116, end: 20090116

REACTIONS (1)
  - Rhesus antibodies positive [Unknown]

NARRATIVE: CASE EVENT DATE: 200904
